FAERS Safety Report 7018269-6 (Version None)
Quarter: 2010Q3

REPORT INFORMATION
  Report Type: 
  Country: None (occurrence: None)
  Receive Date: 20100928
  Receipt Date: 20100915
  Transmission Date: 20110219
  Serious: Yes (Other)
  Sender: FDA-Public Use
  Company Number: JP-SANOFI-AVENTIS-2010SA055455

PATIENT
  Age: 51 Year
  Sex: Male
  Weight: 61 kg

DRUGS (12)
  1. SIGMART [Suspect]
     Indication: PRODUCT USED FOR UNKNOWN INDICATION
     Route: 065
  2. PLAVIX [Suspect]
     Indication: PRODUCT USED FOR UNKNOWN INDICATION
     Route: 048
  3. RENAGEL [Suspect]
     Indication: HYPERPHOSPHATAEMIA
     Route: 048
     Dates: start: 20100708, end: 20100807
  4. ALFAROL [Suspect]
     Indication: PRODUCT USED FOR UNKNOWN INDICATION
  5. LIPITOR [Suspect]
     Indication: PRODUCT USED FOR UNKNOWN INDICATION
     Route: 048
     Dates: start: 20100525, end: 20100807
  6. LENDORMIN [Suspect]
     Indication: PRODUCT USED FOR UNKNOWN INDICATION
  7. COLONEL [Suspect]
     Indication: PRODUCT USED FOR UNKNOWN INDICATION
  8. ALLORINE [Suspect]
     Indication: PRODUCT USED FOR UNKNOWN INDICATION
  9. ASPIRIN [Concomitant]
     Indication: PRODUCT USED FOR UNKNOWN INDICATION
     Dates: start: 20080303
  10. PARIET [Concomitant]
     Indication: PRODUCT USED FOR UNKNOWN INDICATION
     Dates: start: 20080303
  11. FUROSEMIDE [Concomitant]
     Indication: PRODUCT USED FOR UNKNOWN INDICATION
     Dates: start: 20080303
  12. ALLEGRA [Concomitant]
     Indication: PRODUCT USED FOR UNKNOWN INDICATION
     Dates: start: 20100525

REACTIONS (1)
  - RHABDOMYOLYSIS [None]
